FAERS Safety Report 7557405-X (Version None)
Quarter: 2011Q2

REPORT INFORMATION
  Report Type: 
  Country: None (occurrence: None)
  Receive Date: 20110620
  Receipt Date: 20110615
  Transmission Date: 20111010
  Serious: Yes (Death, Hospitalization)
  Sender: FDA-Public Use
  Company Number: PHHY2011US51132

PATIENT
  Sex: Female
  Weight: 81 kg

DRUGS (6)
  1. PEPSIN [Concomitant]
     Route: 048
  2. OXYCODONE HCL [Concomitant]
     Dosage: 10 MG, UNK
     Route: 048
  3. METOPROLOL TARTRATE [Concomitant]
  4. ZOMETA [Suspect]
     Dosage: 4 MG, QMO
     Dates: end: 20110403
  5. GLIPIZIDE [Concomitant]
     Dosage: 5 MG, UNK
     Route: 048
  6. CLONAZEPAM [Concomitant]
     Dosage: 0.5 MG, UNK
     Route: 048

REACTIONS (6)
  - CARDIOMYOPATHY [None]
  - MALIGNANT PLEURAL EFFUSION [None]
  - METABOLIC ENCEPHALOPATHY [None]
  - METASTASES TO CENTRAL NERVOUS SYSTEM [None]
  - RENAL IMPAIRMENT [None]
  - UROSEPSIS [None]
